FAERS Safety Report 15387312 (Version 1)
Quarter: 2018Q3

REPORT INFORMATION
  Report Type: Spontaneous
  Country: None (occurrence: AT)
  Receive Date: 20180914
  Receipt Date: 20180914
  Transmission Date: 20181010
  Serious: Yes (Other)
  Sender: FDA-Public Use
  Company Number: AT-LABORATOIRE HRA PHARMA-2054954

PATIENT
  Age: 50 Year
  Sex: Female

DRUGS (1)
  1. METOPIRONE [Suspect]
     Active Substance: METYRAPONE
     Indication: CUSHING^S SYNDROME

REACTIONS (1)
  - Thrombocytopenia [Unknown]
